FAERS Safety Report 4320800-6 (Version None)
Quarter: 2004Q1

REPORT INFORMATION
  Report Type: 
  Country: None (occurrence: None)
  Receive Date: 20040322
  Receipt Date: 20040308
  Transmission Date: 20041129
  Serious: No
  Sender: FDA-Public Use
  Company Number: WAES 0403USA00870

PATIENT
  Age: 77 Year
  Sex: Female

DRUGS (12)
  1. MUCOSOLVAN-L [Concomitant]
     Route: 048
     Dates: start: 20030330
  2. CONIEL [Concomitant]
     Route: 048
     Dates: start: 19941007
  3. CLARITHROMYCIN [Concomitant]
     Indication: ASTHMA
     Route: 048
     Dates: start: 20040218, end: 20040226
  4. FLUTICASONE PROPIONATE [Concomitant]
     Indication: ASTHMA
     Route: 055
     Dates: start: 20040218, end: 20040226
  5. LOCOL [Concomitant]
     Route: 048
     Dates: start: 20030330
  6. SAXIZON [Concomitant]
     Dates: start: 20040218
  7. SINGULAIR [Suspect]
     Indication: ASTHMA
     Route: 048
     Dates: start: 20040218, end: 20040219
  8. SINGULAIR [Suspect]
     Route: 048
     Dates: start: 20010906, end: 20011128
  9. GASMOTIN [Concomitant]
     Route: 048
     Dates: start: 20010719
  10. MEPTIN [Concomitant]
     Indication: ASTHMA
     Route: 055
     Dates: start: 20040218
  11. SEREVENT [Concomitant]
     Indication: ASTHMA
     Route: 055
     Dates: start: 20040218, end: 20040226
  12. THEOPHYLLINE [Concomitant]
     Indication: ASTHMA
     Route: 048
     Dates: start: 20040218

REACTIONS (3)
  - ABNORMAL BEHAVIOUR [None]
  - DEPRESSED LEVEL OF CONSCIOUSNESS [None]
  - HALLUCINATION, AUDITORY [None]
